FAERS Safety Report 11996270 (Version 4)
Quarter: 2016Q1

REPORT INFORMATION
  Report Type: Report from Study
  Country: HU (occurrence: HU)
  Receive Date: 20160203
  Receipt Date: 20160215
  Transmission Date: 20160526
  Serious: Yes (Death, Hospitalization)
  Sender: FDA-Public Use
  Company Number: HU-ABBVIE-16P-076-1538814-00

PATIENT
  Age: 66 Year
  Sex: Male

DRUGS (4)
  1. VALSARTAN. [Concomitant]
     Active Substance: VALSARTAN
     Indication: HYPERTENSION
     Dosage: HALF TABLET IN THE MORNING
  2. SYNCUMAR [Concomitant]
     Active Substance: ACENOCOUMAROL
     Indication: ANTICOAGULANT THERAPY
     Dosage: 2 TABLETS IN THE MORNING
  3. ACETYLSALICYLIC ACID [Concomitant]
     Active Substance: ASPIRIN
     Indication: PLATELET AGGREGATION INHIBITION
     Route: 048
  4. DUODOPA [Suspect]
     Active Substance: CARBIDOPA\LEVODOPA
     Indication: PARKINSON^S DISEASE
     Dosage: MORNING DOSE: 7ML; CONTINUOUS DOSE: 2.6ML/H; EXTRA DOSE: 2ML
     Route: 050
     Dates: start: 20110404

REACTIONS (10)
  - General physical health deterioration [Not Recovered/Not Resolved]
  - Drug ineffective [Unknown]
  - Stoma site discharge [Not Recovered/Not Resolved]
  - Renal failure [Fatal]
  - Asphyxia [Unknown]
  - Stoma site inflammation [Not Recovered/Not Resolved]
  - Cardiac failure [Fatal]
  - Gait disturbance [Not Recovered/Not Resolved]
  - Oedema peripheral [Unknown]
  - Freezing phenomenon [Unknown]

NARRATIVE: CASE EVENT DATE: 20151222
